FAERS Safety Report 7751285-5 (Version None)
Quarter: 2011Q3

REPORT INFORMATION
  Report Type: 
  Country: None (occurrence: None)
  Receive Date: 20110914
  Receipt Date: 20110912
  Transmission Date: 20111222
  Serious: Yes (Death, Hospitalization)
  Sender: FDA-Public Use
  Company Number: US-B.I. PHARMACEUTICALS,INC./RIDGEFIELD-2011-BP-22000BP

PATIENT
  Sex: Female

DRUGS (1)
  1. MOBIC [Suspect]
     Dosage: 15 MG
     Route: 048
     Dates: start: 20110301, end: 20110627

REACTIONS (3)
  - DEATH [None]
  - GASTRIC ULCER [None]
  - GASTROINTESTINAL HAEMORRHAGE [None]
